FAERS Safety Report 12274264 (Version 1)
Quarter: 2016Q2

REPORT INFORMATION
  Report Type: Spontaneous
  Country: US (occurrence: US)
  Receive Date: 20160415
  Receipt Date: 20160415
  Transmission Date: 20160815
  Serious: No
  Sender: FDA-Public Use
  Company Number: US-ALLERGAN-1521100US

PATIENT
  Sex: Female

DRUGS (3)
  1. ESTRACE VAGINAL [Concomitant]
     Indication: OSTEOPOROSIS PROPHYLAXIS
  2. LUMIGAN [Suspect]
     Active Substance: BIMATOPROST
     Indication: GLAUCOMA
     Dosage: 2 GTT, QHS
     Route: 047
     Dates: start: 20121220
  3. ESTRACE VAGINAL [Concomitant]
     Indication: MENOPAUSE
     Dosage: UNK
     Route: 067

REACTIONS (2)
  - Growth of eyelashes [Not Recovered/Not Resolved]
  - Wrong technique in product usage process [Unknown]
